FAERS Safety Report 20939171 (Version 1)
Quarter: 2022Q2

REPORT INFORMATION
  Report Type: Spontaneous
  Country: US (occurrence: None)
  Receive Date: 20220608
  Receipt Date: 20220608
  Transmission Date: 20220721
  Serious: No
  Sender: FDA-Public Use
  Company Number: None

PATIENT
  Sex: Female
  Weight: 63.05 kg

DRUGS (13)
  1. PIQRAY [Suspect]
     Active Substance: ALPELISIB
     Indication: Breast cancer
     Dosage: 300MB BID ORAL?
     Route: 048
     Dates: start: 202105
  2. ASPIRIN [Concomitant]
     Active Substance: ASPIRIN
  3. CALCIUM [Concomitant]
     Active Substance: CALCIUM
  4. CLOTRIMAZOLE [Concomitant]
     Active Substance: CLOTRIMAZOLE
  5. CLINDAMYCIN [Concomitant]
     Active Substance: CLINDAMYCIN
  6. IRON [Concomitant]
     Active Substance: IRON
  7. OMEPRAZOLE [Concomitant]
     Active Substance: OMEPRAZOLE
  8. LORATADINE [Concomitant]
     Active Substance: LORATADINE
  9. OYSCO [Concomitant]
  10. XGEVA [Concomitant]
     Active Substance: DENOSUMAB
  11. PROAIR HFA [Concomitant]
     Active Substance: ALBUTEROL SULFATE
  12. SIMVASTATIN [Concomitant]
     Active Substance: SIMVASTATIN
  13. SIMGULIAR [Concomitant]

REACTIONS (1)
  - Disease progression [None]
